FAERS Safety Report 6285607-1 (Version None)
Quarter: 2009Q3

REPORT INFORMATION
  Report Type: 
  Country: None (occurrence: None)
  Receive Date: 20090724
  Receipt Date: 20090715
  Transmission Date: 20100115
  Serious: Yes (Other)
  Sender: FDA-Public Use
  Company Number: DSA_33758_2009

PATIENT
  Sex: Male
  Weight: 68.9467 kg

DRUGS (14)
  1. XENAZINE [Suspect]
     Indication: HUNTINGTON'S CHOREA
     Dosage: 12.5 MG BID ORAL, 12.5 MG QD ORAL
     Route: 048
     Dates: start: 20081229, end: 20090101
  2. XENAZINE [Suspect]
     Indication: HUNTINGTON'S CHOREA
     Dosage: 12.5 MG BID ORAL, 12.5 MG QD ORAL
     Route: 048
     Dates: start: 20090101
  3. ARICEPT [Concomitant]
  4. CENTRUM [Concomitant]
  5. COENZYME Q10 [Concomitant]
  6. HALDOL [Concomitant]
  7. ATIVAN [Concomitant]
  8. MELATONIN [Concomitant]
  9. RISPERDAL [Concomitant]
  10. SENNA [Concomitant]
  11. TYLENOL (CAPLET) [Concomitant]
  12. VITAMIN D [Concomitant]
  13. OXYCODONE [Concomitant]
  14. ZYPREXA [Concomitant]

REACTIONS (5)
  - AGGRESSION [None]
  - CHOREA [None]
  - CONDITION AGGRAVATED [None]
  - MOVEMENT DISORDER [None]
  - PHYSICAL ASSAULT [None]
